FAERS Safety Report 24675623 (Version 1)
Quarter: 2024Q4

REPORT INFORMATION
  Report Type: Spontaneous
  Country: US (occurrence: US)
  Receive Date: 20241128
  Receipt Date: 20241128
  Transmission Date: 20250115
  Serious: No
  Sender: ABBVIE
  Company Number: US-ABBVIE-6013849

PATIENT
  Sex: Female

DRUGS (1)
  1. VRAYLAR [Suspect]
     Active Substance: CARIPRAZINE
     Indication: Major depression
     Dosage: 1.5 MILLIGRAM
     Route: 048
     Dates: start: 202409

REACTIONS (2)
  - Anxiety [Unknown]
  - Akathisia [Unknown]

NARRATIVE: CASE EVENT DATE: 20240101
